FAERS Safety Report 4484866-5 (Version None)
Quarter: 2004Q4

REPORT INFORMATION
  Report Type: 
  Country: None (occurrence: None)
  Receive Date: 20041025
  Receipt Date: 20041020
  Transmission Date: 20050328
  Serious: Yes (Hospitalization)
  Sender: FDA-Public Use
  Company Number: PHEH2004US11329

PATIENT

DRUGS (1)
  1. GLEEVEC [Suspect]
     Dosage: 800 MG, UNK

REACTIONS (3)
  - DRUG EFFECT DECREASED [None]
  - DYSPNOEA [None]
  - EFFUSION [None]
